FAERS Safety Report 8369518-3 (Version None)
Quarter: 2012Q2

REPORT INFORMATION
  Report Type: 
  Country: None (occurrence: None)
  Receive Date: 20120518
  Receipt Date: 20120516
  Transmission Date: 20120825
  Serious: Yes (Life-Threatening, Hospitalization)
  Sender: FDA-Public Use
  Company Number: CN-JNJFOC-20110700644

PATIENT
  Sex: Male
  Weight: 50 kg

DRUGS (4)
  1. DEXAMETHASONE [Concomitant]
     Indication: PREMEDICATION
     Route: 042
     Dates: start: 20110622, end: 20110622
  2. REMICADE [Suspect]
     Indication: RHEUMATOID ARTHRITIS
     Dosage: 4TH INFUSION
     Route: 042
     Dates: start: 20110430
  3. REMICADE [Suspect]
     Route: 042
  4. REMICADE [Suspect]
     Dosage: 5TH INFUSIONDOSE INTERVAL: 32
     Route: 042
     Dates: start: 20110622

REACTIONS (11)
  - PALPITATIONS [None]
  - ROSEOLA [None]
  - SCLERODERMA [None]
  - HEART RATE INCREASED [None]
  - LARYNGEAL OEDEMA [None]
  - ARRHYTHMIA [None]
  - PRURITUS [None]
  - RASH [None]
  - DYSPNOEA [None]
  - INFUSION RELATED REACTION [None]
  - RHEUMATOID ARTHRITIS [None]
